FAERS Safety Report 24815897 (Version 1)
Quarter: 2025Q1

REPORT INFORMATION
  Report Type: Spontaneous
  Country: CN (occurrence: CN)
  Receive Date: 20250107
  Receipt Date: 20250107
  Transmission Date: 20250408
  Serious: Yes (Hospitalization, Other)
  Sender: PFIZER
  Company Number: CN-PFIZER INC-PV202500000303

PATIENT
  Age: 11 Year
  Sex: Female
  Weight: 35 kg

DRUGS (4)
  1. CYTARABINE [Suspect]
     Active Substance: CYTARABINE
     Indication: Platelet count decreased
     Dosage: 0.06 G, 2X/DAY
     Route: 058
     Dates: start: 20241202, end: 20241209
  2. CYCLOPHOSPHAMIDE [Suspect]
     Active Substance: CYCLOPHOSPHAMIDE
     Indication: Platelet count decreased
     Dosage: 1.18 G, 1X/DAY
     Route: 041
     Dates: start: 20241202, end: 20241202
  3. MERCAPTOPURINE [Suspect]
     Active Substance: MERCAPTOPURINE
     Indication: Platelet count decreased
     Dosage: 50 MG, 1X/DAY
     Route: 048
     Dates: start: 20241202, end: 20241208
  4. SODIUM CHLORIDE [Concomitant]
     Active Substance: SODIUM CHLORIDE
     Indication: Platelet count decreased
     Dosage: 100 ML, 1X/DAY
     Route: 042
     Dates: start: 20241202, end: 20241202

REACTIONS (8)
  - Myelosuppression [Recovering/Resolving]
  - Neutropenic infection [Unknown]
  - Pallor [Unknown]
  - Decreased appetite [Unknown]
  - Mouth ulceration [Recovering/Resolving]
  - Pharyngeal erythema [Unknown]
  - Productive cough [Unknown]
  - Off label use [Unknown]

NARRATIVE: CASE EVENT DATE: 20241202
